FAERS Safety Report 4813422-1 (Version None)
Quarter: 2005Q4

REPORT INFORMATION
  Report Type: 
  Country: None (occurrence: None)
  Receive Date: 20051026
  Receipt Date: 20051011
  Transmission Date: 20060501
  Serious: Yes (Hospitalization)
  Sender: FDA-Public Use
  Company Number: USA0510110584

PATIENT
  Sex: Female

DRUGS (4)
  1. ILETIN-PORK NPH INSULIN (INSULIN, ANIMAL) [Suspect]
     Indication: DIABETES MELLITUS
  2. ILETIN-PORK REGULAR INSULIN (INSULIN, ANIMAL) [Suspect]
     Indication: DIABETES MELLITUS
  3. HUMULIN N [Suspect]
     Indication: DIABETES MELLITUS
     Dates: start: 20010101
  4. HUMULIN R [Suspect]
     Indication: DIABETES MELLITUS
     Dates: start: 20010101

REACTIONS (7)
  - BURNING SENSATION [None]
  - CRYING [None]
  - ERYTHEMA [None]
  - NERVOUS SYSTEM DISORDER [None]
  - NEUROPATHY [None]
  - PAIN [None]
  - SKIN REACTION [None]
